FAERS Safety Report 17121508 (Version 3)
Quarter: 2020Q4

REPORT INFORMATION
  Report Type: Spontaneous
  Country: SE (occurrence: SE)
  Receive Date: 20191206
  Receipt Date: 20201229
  Transmission Date: 20210113
  Serious: Yes (Hospitalization, Other)
  Sender: FDA-Public Use
  Company Number: SE-GLAXOSMITHKLINE-SE2019217741

PATIENT
  Age: 17 Year
  Sex: Female
  Weight: 70 kg

DRUGS (2)
  1. PROPAVAN [Suspect]
     Active Substance: PROPIOMAZINE
     Indication: PRODUCT USED FOR UNKNOWN INDICATION
     Dosage: 10 PIECES. INTOX 2018-06-20 OR 2018-06-21
     Route: 048
     Dates: start: 201806, end: 201806
  2. DICLOFENAC [Suspect]
     Active Substance: DICLOFENAC
     Indication: PRODUCT USED FOR UNKNOWN INDICATION
     Dosage: INTOX 2018-06-20 OR 2018-06-21.
     Route: 048
     Dates: start: 201806, end: 201806

REACTIONS (2)
  - Intentional self-injury [Unknown]
  - Intentional overdose [Unknown]

NARRATIVE: CASE EVENT DATE: 201806
